FAERS Safety Report 9553893 (Version 1)
Quarter: 2013Q3

REPORT INFORMATION
  Report Type: Spontaneous
  Country: BR (occurrence: BR)
  Receive Date: 20130925
  Receipt Date: 20130925
  Transmission Date: 20140515
  Serious: Yes (Other)
  Sender: FDA-Public Use
  Company Number: BR-JNJFOC-20130911458

PATIENT
  Age: 50 Year
  Sex: Female
  Weight: 102 kg

DRUGS (8)
  1. REMICADE [Suspect]
     Indication: ANKYLOSING SPONDYLITIS
     Route: 042
     Dates: start: 20130917
  2. ENALAPRIL [Concomitant]
     Indication: HYPERTENSION
     Route: 065
     Dates: start: 2011
  3. PURAN T4 [Concomitant]
     Indication: HYPOTHYROIDISM
     Route: 065
  4. CYCLOBENZAPRINE [Concomitant]
     Indication: FIBROMYALGIA
     Route: 065
  5. ACETAMINOPHEN [Concomitant]
     Indication: PAIN
     Route: 065
  6. OMEPRAZOLE [Concomitant]
     Indication: GASTRIC DISORDER
     Route: 065
  7. AZULFIDIN [Concomitant]
     Indication: ANKYLOSING SPONDYLITIS
     Route: 065
     Dates: end: 20130916
  8. NIMESULIDE BETA-CYCLODEXTRINE [Concomitant]
     Indication: PAIN
     Route: 065

REACTIONS (8)
  - Tachycardia [Not Recovered/Not Resolved]
  - Infusion related reaction [Not Recovered/Not Resolved]
  - Anxiety [Not Recovered/Not Resolved]
  - Headache [Not Recovered/Not Resolved]
  - Malaise [Not Recovered/Not Resolved]
  - Fatigue [Not Recovered/Not Resolved]
  - Nausea [Not Recovered/Not Resolved]
  - Dizziness [Not Recovered/Not Resolved]
